FAERS Safety Report 22956525 (Version 3)
Quarter: 2023Q4

REPORT INFORMATION
  Report Type: Spontaneous
  Country: US (occurrence: US)
  Receive Date: 20230919
  Receipt Date: 20231103
  Transmission Date: 20240110
  Serious: No
  Sender: FDA-Public Use
  Company Number: US-PFIZER INC-PV202300147826

PATIENT
  Age: 14 Year
  Sex: Male

DRUGS (2)
  1. GENOTROPIN [Suspect]
     Active Substance: SOMATROPIN
     Dosage: 1.8 MG (1.8MG ALTERNATING WITH 2MG)
  2. GENOTROPIN [Suspect]
     Active Substance: SOMATROPIN
     Dosage: 2 MG (1.8MG ALTERNATING WITH 2MG)

REACTIONS (5)
  - Device breakage [Unknown]
  - Device leakage [Unknown]
  - Poor quality device used [Unknown]
  - Device use error [Unknown]
  - Drug dose omission by device [Unknown]
